FAERS Safety Report 19132463 (Version 1)
Quarter: 2021Q2

REPORT INFORMATION
  Report Type: Spontaneous
  Country: US (occurrence: US)
  Receive Date: 20210413
  Receipt Date: 20210413
  Transmission Date: 20210717
  Serious: Yes (Other)
  Sender: FDA-Public Use
  Company Number: US-GLAXOSMITHKLINE-US2021GSK083247

PATIENT
  Sex: Male

DRUGS (2)
  1. RANITIDINE. [Suspect]
     Active Substance: RANITIDINE
     Indication: LIVER TRANSPLANT
     Dosage: 150 MG, QD
     Route: 065
     Dates: start: 200008, end: 201908
  2. RANITIDINE. [Suspect]
     Active Substance: RANITIDINE
     Indication: LIVER TRANSPLANT
     Dosage: 150 MG, QD
     Route: 065
     Dates: start: 200008, end: 201908

REACTIONS (2)
  - Prostate cancer [Unknown]
  - Renal cancer [Unknown]
